FAERS Safety Report 11828042 (Version 1)
Quarter: 2015Q4

REPORT INFORMATION
  Report Type: Spontaneous
  Country: BR (occurrence: BR)
  Receive Date: 20151211
  Receipt Date: 20151211
  Transmission Date: 20160305
  Serious: Yes (Hospitalization, Other)
  Sender: FDA-Public Use
  Company Number: BR-ELI_LILLY_AND_COMPANY-BR201512000187

PATIENT
  Sex: Female
  Weight: 88 kg

DRUGS (6)
  1. MIOSAN [Concomitant]
     Active Substance: CYCLOBENZAPRINE
     Dosage: UNK, UNKNOWN
     Route: 065
  2. DEOCIL [Concomitant]
     Active Substance: KETOROLAC TROMETHAMINE
     Dosage: UNK, UNKNOWN
     Route: 065
  3. DIPIRONA [Concomitant]
     Active Substance: METAMIZOLE
     Dosage: UNK, UNKNOWN
     Route: 065
  4. FAULDCISPLA [Concomitant]
     Active Substance: CISPLATIN
     Indication: BREAST NEOPLASM
     Dosage: 30 MG/M2, CYCLICAL
     Route: 042
     Dates: start: 20150402
  5. GEMZAR [Suspect]
     Active Substance: GEMCITABINE HYDROCHLORIDE
     Indication: BREAST NEOPLASM
     Dosage: 750 MG/M2, CYCLICAL
     Route: 042
     Dates: start: 20150402
  6. OXICODONA [Concomitant]
     Dosage: UNK, UNKNOWN
     Route: 065

REACTIONS (3)
  - Febrile neutropenia [Unknown]
  - Axillary vein thrombosis [Unknown]
  - Subclavian vein thrombosis [Unknown]
